FAERS Safety Report 16890804 (Version 3)
Quarter: 2019Q4

REPORT INFORMATION
  Report Type: Spontaneous
  Country: US (occurrence: US)
  Receive Date: 20191007
  Receipt Date: 20191029
  Transmission Date: 20200122
  Serious: Yes (Other)
  Sender: FDA-Public Use
  Company Number: US-PFIZER INC-2019421708

PATIENT
  Age: 27 Year
  Sex: Female
  Weight: 68 kg

DRUGS (3)
  1. TALZENNA [Suspect]
     Active Substance: TALAZOPARIB TOSYLATE
     Indication: BREAST CANCER METASTATIC
     Dosage: 1 MG, UNK
  2. TALZENNA [Suspect]
     Active Substance: TALAZOPARIB TOSYLATE
     Indication: ANAEMIA VITAMIN B12 DEFICIENCY
     Dosage: 0.75 MG, UNK
  3. TALZENNA [Suspect]
     Active Substance: TALAZOPARIB TOSYLATE
     Dosage: 0.25 MG, 3X/DAY (1 CAPSULE BY MOUTH THREE TIMES DAILY)
     Route: 048
     Dates: start: 201906

REACTIONS (5)
  - Product use in unapproved indication [Unknown]
  - Off label use [Unknown]
  - Full blood count decreased [Unknown]
  - Fatigue [Unknown]
  - Haemoglobin decreased [Recovering/Resolving]

NARRATIVE: CASE EVENT DATE: 201906
